FAERS Safety Report 20379628 (Version 3)
Quarter: 2022Q2

REPORT INFORMATION
  Report Type: Spontaneous
  Country: US (occurrence: None)
  Receive Date: 20220126
  Receipt Date: 20220604
  Transmission Date: 20220721
  Serious: Yes (Death)
  Sender: FDA-Public Use
  Company Number: US-ROCHE-3009818

PATIENT
  Age: 57 Year
  Sex: Male
  Weight: 64.468 kg

DRUGS (1)
  1. ESBRIET [Suspect]
     Active Substance: PIRFENIDONE
     Indication: Idiopathic pulmonary fibrosis
     Dosage: ONGOING: UNKNOWN
     Route: 048
     Dates: start: 202003

REACTIONS (3)
  - Peripheral ischaemia [Fatal]
  - Cardiac arrest [Fatal]
  - Diabetes mellitus [Fatal]

NARRATIVE: CASE EVENT DATE: 20211012
